FAERS Safety Report 6073042-0 (Version None)
Quarter: 2009Q1

REPORT INFORMATION
  Report Type: 
  Country: None (occurrence: None)
  Receive Date: 20090211
  Receipt Date: 20090204
  Transmission Date: 20090719
  Serious: No
  Sender: FDA-Public Use
  Company Number: US-JNJFOC-20090201516

PATIENT
  Sex: Male
  Weight: 68.04 kg

DRUGS (5)
  1. DURAGESIC-100 [Suspect]
     Indication: CROHN'S DISEASE
     Route: 062
  2. PREDNISONE [Concomitant]
     Indication: CROHN'S DISEASE
     Route: 048
  3. PHENERGAN [Concomitant]
     Indication: CROHN'S DISEASE
     Route: 048
  4. NEXIUM [Concomitant]
     Indication: CROHN'S DISEASE
     Route: 048
  5. FLAGYL [Concomitant]
     Indication: CROHN'S DISEASE
     Route: 048

REACTIONS (4)
  - INCORRECT DRUG ADMINISTRATION DURATION [None]
  - PAIN [None]
  - PRODUCT QUALITY ISSUE [None]
  - THERAPY CESSATION [None]
